FAERS Safety Report 8893400 (Version 1)
Quarter: 2012Q4

REPORT INFORMATION
  Report Type: 
  Country: US (occurrence: US)
  Receive Date: 20121107
  Receipt Date: 20121107
  Transmission Date: 20130627
  Serious: No
  Sender: FDA-Public Use
  Company Number: US-AMGEN-USASP2011053365

PATIENT
  Age: 64 Year
  Sex: Female
  Weight: 83.9 kg

DRUGS (9)
  1. ENBREL [Suspect]
     Indication: PRODUCT USED FOR UNKNOWN INDICATION
     Dosage: 50 mg, qwk
     Route: 058
  2. AMLODIPINE [Concomitant]
     Dosage: 10 mg, UNK
  3. ARAVA [Concomitant]
     Dosage: 10 mg, UNK
  4. OMEPRAZOLE [Suspect]
     Dosage: 20 mg, UNK
  5. METOPROLOL TARTRATE [Concomitant]
     Dosage: 25 mg, UNK
  6. BENICAR [Concomitant]
     Dosage: 20 mg, UNK
  7. CALCIUM [Concomitant]
     Dosage: 500 mg, UNK
  8. MULTIVITAMIN                       /00097801/ [Concomitant]
  9. VITAMIN D [Suspect]
     Dosage: 400 UNK, UNK

REACTIONS (1)
  - Anal fungal infection [Unknown]
